FAERS Safety Report 18992696 (Version 1)
Quarter: 2021Q1

REPORT INFORMATION
  Report Type: Spontaneous
  Country: TH (occurrence: TH)
  Receive Date: 20210310
  Receipt Date: 20210310
  Transmission Date: 20210420
  Serious: No
  Sender: FDA-Public Use
  Company Number: TH-LUPIN PHARMACEUTICALS INC.-2021-02977

PATIENT
  Age: 62 Year
  Sex: Male

DRUGS (5)
  1. BUDESONIDE. [Suspect]
     Active Substance: BUDESONIDE
     Indication: SEBORRHOEIC DERMATITIS
     Dosage: UNK
     Route: 061
  2. FUCIDIN [FUSIDIC ACID] [Concomitant]
     Active Substance: FUSIDIC ACID
     Indication: ROSACEA
     Dosage: UNK
     Route: 061
  3. HYDROCORTISONE. [Suspect]
     Active Substance: HYDROCORTISONE
     Indication: ROSACEA
     Dosage: UNK (CREAM)
     Route: 061
  4. IVERMECTIN. [Suspect]
     Active Substance: IVERMECTIN
     Indication: ROSACEA
     Dosage: UNK
     Route: 061
  5. MIRVASO [Suspect]
     Active Substance: BRIMONIDINE TARTRATE
     Indication: ROSACEA
     Dosage: UNK
     Route: 061

REACTIONS (1)
  - Dermatitis contact [Recovered/Resolved]
